FAERS Safety Report 7007910-X (Version None)
Quarter: 2010Q3

REPORT INFORMATION
  Report Type: 
  Country: None (occurrence: None)
  Receive Date: 20100922
  Receipt Date: 20100915
  Transmission Date: 20110219
  Serious: Yes (Hospitalization)
  Sender: FDA-Public Use
  Company Number: ES-BRISTOL-MYERS SQUIBB COMPANY-15296726

PATIENT
  Sex: Male

DRUGS (1)
  1. ERBITUX [Suspect]

REACTIONS (1)
  - CARDIOTOXICITY [None]
